FAERS Safety Report 7281823-0 (Version None)
Quarter: 2011Q1

REPORT INFORMATION
  Report Type: 
  Country: None (occurrence: None)
  Receive Date: 20110208
  Receipt Date: 20110203
  Transmission Date: 20110831
  Serious: Yes (Other)
  Sender: FDA-Public Use
  Company Number: BR-PFIZER INC-2011025553

PATIENT
  Sex: Female

DRUGS (1)
  1. LYRICA [Suspect]
     Route: 048

REACTIONS (3)
  - SOMNOLENCE [None]
  - FALL [None]
  - WRIST FRACTURE [None]
